FAERS Safety Report 11378453 (Version 1)
Quarter: 2015Q3

REPORT INFORMATION
  Report Type: Spontaneous
  Country: US (occurrence: US)
  Receive Date: 20150811
  Receipt Date: 20150811
  Transmission Date: 20151125
  Serious: No
  Sender: FDA-Public Use
  Company Number: US-ELI_LILLY_AND_COMPANY-US201302006809

PATIENT
  Sex: Male
  Weight: 70.75 kg

DRUGS (2)
  1. TYVASO [Concomitant]
     Active Substance: TREPROSTINIL
     Indication: COR PULMONALE CHRONIC
     Dosage: UNK UNK, QID
     Route: 055
     Dates: start: 20100809
  2. ADCIRCA [Suspect]
     Active Substance: TADALAFIL

REACTIONS (1)
  - Dyspnoea [Unknown]
